FAERS Safety Report 8965271 (Version 1)
Quarter: 2012Q4

REPORT INFORMATION
  Report Type: 
  Country: US (occurrence: US)
  Receive Date: 20121213
  Receipt Date: 20121213
  Transmission Date: 20130627
  Serious: Yes (Hospitalization)
  Sender: FDA-Public Use
  Company Number: US-BRISTOL-MYERS SQUIBB COMPANY-17165838

PATIENT
  Age: 54 Year
  Sex: Female

DRUGS (2)
  1. COUMADIN [Suspect]
  2. COPAXONE [Suspect]
     Indication: MULTIPLE SCLEROSIS
     Dates: start: 20120814

REACTIONS (2)
  - Vomiting [Recovering/Resolving]
  - Asthenia [Recovering/Resolving]
